FAERS Safety Report 13250207 (Version 3)
Quarter: 2017Q2

REPORT INFORMATION
  Report Type: Spontaneous
  Country: US (occurrence: US)
  Receive Date: 20170218
  Receipt Date: 20170614
  Transmission Date: 20170830
  Serious: Yes (Other)
  Sender: FDA-Public Use
  Company Number: US-TEVA-740685ACC

PATIENT
  Sex: Female

DRUGS (2)
  1. DEXTROAMPHETAMINE. [Concomitant]
     Active Substance: DEXTROAMPHETAMINE
     Dosage: 10 MILLIGRAM DAILY;
  2. PARAGARD T 380A [Suspect]
     Active Substance: COPPER
     Indication: CONTRACEPTION
     Dates: start: 20161229, end: 20170206

REACTIONS (3)
  - Pregnancy on contraceptive [Unknown]
  - Exposure during pregnancy [Unknown]
  - Device expulsion [Recovered/Resolved]
